FAERS Safety Report 4777146-1 (Version None)
Quarter: 2005Q3

REPORT INFORMATION
  Report Type: 
  Country: None (occurrence: None)
  Receive Date: 20050923
  Receipt Date: 20050915
  Transmission Date: 20060218
  Serious: Yes (Hospitalization)
  Sender: FDA-Public Use
  Company Number: GB-ROCHE-417935

PATIENT
  Age: 45 Year
  Sex: Male

DRUGS (9)
  1. MYCOPHENOLATE MOFETIL [Suspect]
     Route: 065
     Dates: start: 20040908, end: 20040908
  2. MYCOPHENOLATE MOFETIL [Suspect]
     Route: 065
     Dates: start: 20040908
  3. TACROLIMUS [Suspect]
     Dosage: ADJUSTMENT TO REACH PREDEFINED TARGET LEVELS.
     Route: 065
     Dates: start: 20040908
  4. METHYLPREDNISOLONE [Suspect]
     Route: 065
     Dates: start: 20040908, end: 20040908
  5. PREDNISOLONE [Suspect]
     Dosage: TAPER ACCORDING TO PROTOCOL. 2.5 MG AND 5 MG ON ALTERNATIVE DAYS.
     Route: 065
     Dates: start: 20040909, end: 20041118
  6. MIXTARD HUMAN 70/30 [Concomitant]
  7. METOPROLOL [Concomitant]
     Dates: start: 20040908
  8. AMOXICILLIN AND CLAVULANATE POTASSIUM [Concomitant]
     Dates: start: 20040908, end: 20040908
  9. ATENOLOL [Concomitant]
     Dates: end: 20040907

REACTIONS (2)
  - DYSPNOEA [None]
  - PULMONARY OEDEMA [None]
